FAERS Safety Report 14403204 (Version 1)
Quarter: 2018Q1

REPORT INFORMATION
  Report Type: Spontaneous
  Country: FR (occurrence: FR)
  Receive Date: 20180117
  Receipt Date: 20180117
  Transmission Date: 20180509
  Serious: Yes (Hospitalization)
  Sender: FDA-Public Use
  Company Number: FR-TEVA-2018-FR-843710

PATIENT
  Age: 75 Year
  Sex: Male
  Weight: 81.1 kg

DRUGS (5)
  1. KARDEGIC 160 MG, POUDRE POUR SOLUTION BUVABLE EN SACHET [Concomitant]
     Route: 048
  2. LOXEN L P 50 MG, GELULE A LIBERATION PROLONGEE [Interacting]
     Active Substance: NICARDIPINE HYDROCHLORIDE
     Indication: HYPERTENSION
     Route: 048
     Dates: end: 20170816
  3. RAMIPRIL. [Suspect]
     Active Substance: RAMIPRIL
     Indication: HYPERTENSION
     Route: 048
     Dates: end: 20170816
  4. SEROPLEX 10 MG, COMPRIME PELLICULE SECABLE [Concomitant]
     Route: 048
  5. RISPERDAL [Concomitant]
     Active Substance: RISPERIDONE
     Route: 048

REACTIONS (3)
  - Drug interaction [Unknown]
  - Orthostatic hypotension [Recovered/Resolved]
  - Fall [Recovered/Resolved]

NARRATIVE: CASE EVENT DATE: 20170816
